FAERS Safety Report 25825535 (Version 1)
Quarter: 2025Q3

REPORT INFORMATION
  Report Type: Spontaneous
  Country: CN (occurrence: CN)
  Receive Date: 20250919
  Receipt Date: 20250919
  Transmission Date: 20251020
  Serious: Yes (Hospitalization, Disabling, Other)
  Sender: MERCK SHARP & DOHME LLC
  Company Number: CN-009507513-2328806

PATIENT
  Age: 58 Year
  Sex: Male
  Weight: 54 kg

DRUGS (3)
  1. PEMBROLIZUMAB [Suspect]
     Active Substance: PEMBROLIZUMAB
     Indication: Gallbladder neoplasm
     Route: 041
     Dates: start: 20250819, end: 20250819
  2. GEMCITABINE HYDROCHLORIDE [Concomitant]
     Active Substance: GEMCITABINE HYDROCHLORIDE
     Indication: Gallbladder neoplasm
     Route: 041
     Dates: start: 20250819, end: 20250819
  3. CISPLATIN [Concomitant]
     Active Substance: CISPLATIN
     Indication: Gallbladder neoplasm
     Route: 041
     Dates: start: 20250819, end: 20250819

REACTIONS (2)
  - Myelosuppression [Not Recovered/Not Resolved]
  - Malignant neoplasm progression [Unknown]

NARRATIVE: CASE EVENT DATE: 20250801
